FAERS Safety Report 7492223-2 (Version None)
Quarter: 2011Q2

REPORT INFORMATION
  Report Type: 
  Country: None (occurrence: None)
  Receive Date: 20110519
  Receipt Date: 20101123
  Transmission Date: 20111010
  Serious: No
  Sender: FDA-Public Use
  Company Number: US-NOVEN-ALL1-2010-06166

PATIENT
  Sex: Male
  Weight: 22.676 kg

DRUGS (4)
  1. DAYTRANA [Suspect]
     Dosage: UNK MG, 1X/DAY:QD (ONE 10 MG PATCH AND ONE 10 MG PATCH CUT IN HALF DAILY)
     Route: 062
     Dates: start: 20100701
  2. DAYTRANA [Suspect]
     Dosage: 10 MG, 1X/DAY:QD
     Route: 062
     Dates: start: 20090101, end: 20100101
  3. DAYTRANA [Suspect]
     Dosage: 15 MG, 1X/DAY:QD
     Route: 062
     Dates: start: 20100101, end: 20100701
  4. DAYTRANA [Suspect]
     Dosage: 10 MG, 1X/DAY:QD
     Route: 062
     Dates: start: 20100701, end: 20100701

REACTIONS (6)
  - FEELING JITTERY [None]
  - PRODUCT QUALITY ISSUE [None]
  - ENERGY INCREASED [None]
  - WRONG TECHNIQUE IN DRUG USAGE PROCESS [None]
  - INCREASED APPETITE [None]
  - DRUG INEFFECTIVE [None]
